FAERS Safety Report 18873309 (Version 4)
Quarter: 2021Q4

REPORT INFORMATION
  Report Type: Report from Study
  Country: TR (occurrence: TR)
  Receive Date: 20210210
  Receipt Date: 20211109
  Transmission Date: 20220303
  Serious: Yes (Hospitalization, Other)
  Sender: FDA-Public Use
  Company Number: TR-REGENERON PHARMACEUTICALS, INC.-2020-97727

PATIENT

DRUGS (6)
  1. CEMIPLIMAB [Suspect]
     Active Substance: CEMIPLIMAB
     Indication: Lung squamous cell carcinoma stage IV
     Dosage: 350 MG, Q3W
     Route: 042
     Dates: start: 20190712, end: 20201127
  2. PROPYLTHIOURACIL [Concomitant]
     Active Substance: PROPYLTHIOURACIL
     Indication: Goitre
     Dosage: 50 MG, QD
     Route: 048
     Dates: start: 20190517
  3. DEXKETOPROFEN [Concomitant]
     Active Substance: DEXKETOPROFEN
     Indication: Pain prophylaxis
     Dosage: 25 MG, PRN
     Route: 048
     Dates: start: 20190402
  4. TIOTROPIUM BROMIDE MONOHYDRATE [Concomitant]
     Active Substance: TIOTROPIUM BROMIDE MONOHYDRATE
     Indication: Lung neoplasm malignant
     Dosage: 18 MCG, QD
     Route: 055
     Dates: start: 20190711
  5. METHYLPREDNISOLONE [Concomitant]
     Active Substance: METHYLPREDNISOLONE
     Indication: Peripheral swelling
     Dosage: 4 MG, QD
     Route: 048
     Dates: start: 20200608
  6. HYDROXYCHLOROQUINE SULFATE [Concomitant]
     Active Substance: HYDROXYCHLOROQUINE SULFATE
     Indication: Peripheral swelling
     Dosage: 200 MG, QD
     Route: 048
     Dates: start: 20200724

REACTIONS (3)
  - Hepatitis toxic [Recovered/Resolved]
  - Blood alkaline phosphatase increased [Not Recovered/Not Resolved]
  - Aspartate aminotransferase increased [Recovered/Resolved]

NARRATIVE: CASE EVENT DATE: 20201217
